FAERS Safety Report 10314575 (Version 3)
Quarter: 2014Q3

REPORT INFORMATION
  Report Type: Spontaneous
  Country: US (occurrence: None)
  Receive Date: 20140715
  Receipt Date: 20140828
  Transmission Date: 20150326
  Serious: Yes (Other)
  Sender: FDA-Public Use
  Company Number: ADR-2014-00373

PATIENT
  Age: 62 Year
  Sex: Male

DRUGS (4)
  1. BUPIVACAINE [Suspect]
     Active Substance: BUPIVACAINE
  2. LIORESAL [Suspect]
     Active Substance: BACLOFEN
     Indication: PAIN
  3. DROPERIDOL. [Suspect]
     Active Substance: DROPERIDOL
  4. SUFENTANIL [Suspect]
     Active Substance: SUFENTANIL

REACTIONS (5)
  - Device leakage [None]
  - Device connection issue [None]
  - Pain [None]
  - Implant site scar [None]
  - Therapeutic response decreased [None]

NARRATIVE: CASE EVENT DATE: 20130919
